FAERS Safety Report 16040533 (Version 10)
Quarter: 2019Q3

REPORT INFORMATION
  Report Type: Spontaneous
  Country: US (occurrence: US)
  Receive Date: 20190306
  Receipt Date: 20190917
  Transmission Date: 20191004
  Serious: No
  Sender: FDA-Public Use
  Company Number: US-RECKITT BENCKISER HEALTHCARE INT LIMITED-RB-80848-2019

PATIENT
  Age: 57 Year
  Sex: Male

DRUGS (2)
  1. MUCINEX DM MAXIMUM STRENGTH [Suspect]
     Active Substance: DEXTROMETHORPHAN HYDROBROMIDE\GUAIFENESIN
     Indication: PRODUCT USED FOR UNKNOWN INDICATION
     Dosage: 1200 MILLIGRAM, SINGLE
     Route: 048
     Dates: start: 20190103
  2. MUCINEX [Suspect]
     Active Substance: GUAIFENESIN
     Indication: PRODUCT USED FOR UNKNOWN INDICATION
     Dosage: 1200 MILLIGRAM, SINGLE
     Route: 048
     Dates: start: 20190103

REACTIONS (4)
  - Heart rate increased [Recovered/Resolved]
  - Chest discomfort [Recovered/Resolved]
  - Anxiety [Recovered/Resolved]
  - Incorrect product administration duration [Recovered/Resolved]

NARRATIVE: CASE EVENT DATE: 20190103
